FAERS Safety Report 9841430 (Version 2)
Quarter: 2014Q1

REPORT INFORMATION
  Report Type: Report from Study
  Country: US (occurrence: US)
  Receive Date: 20140124
  Receipt Date: 20140214
  Transmission Date: 20141002
  Serious: Yes (Other)
  Sender: FDA-Public Use
  Company Number: US-JNJFOC-20140111524

PATIENT
  Sex: Female
  Weight: 112.49 kg

DRUGS (8)
  1. REMICADE [Suspect]
     Indication: FIBROMYALGIA
     Dosage: DOSE: ^400 OR 500^
     Route: 042
     Dates: start: 2006, end: 2008
  2. REMICADE [Suspect]
     Indication: FIBROMYALGIA
     Dosage: DOSE: 400 OR 500 MG
     Route: 042
     Dates: start: 2013
  3. REMICADE [Suspect]
     Indication: FIBROMYALGIA
     Dosage: DOSE: 400 OR 500 MG
     Route: 042
     Dates: start: 201401
  4. REMICADE [Suspect]
     Indication: FIBROMYALGIA
     Dosage: DOSE: 400 OR 500 MG
     Route: 042
     Dates: start: 2011
  5. REMICADE [Suspect]
     Indication: RHEUMATOID ARTHRITIS
     Dosage: DOSE: 400 OR 500 MG
     Route: 042
     Dates: start: 2011
  6. REMICADE [Suspect]
     Indication: RHEUMATOID ARTHRITIS
     Dosage: DOSE: 400 OR 500 MG
     Route: 042
     Dates: start: 201401
  7. REMICADE [Suspect]
     Indication: RHEUMATOID ARTHRITIS
     Dosage: DOSE: 400 OR 500 MG
     Route: 042
     Dates: start: 2013
  8. REMICADE [Suspect]
     Indication: RHEUMATOID ARTHRITIS
     Dosage: DOSE: ^400 OR 500^
     Route: 042
     Dates: start: 2006, end: 2008

REACTIONS (15)
  - Myocardial infarction [Recovered/Resolved]
  - General physical health deterioration [Unknown]
  - Adverse event [Not Recovered/Not Resolved]
  - Atrial fibrillation [Not Recovered/Not Resolved]
  - Arthralgia [Not Recovered/Not Resolved]
  - Musculoskeletal stiffness [Not Recovered/Not Resolved]
  - Off label use [Unknown]
  - Muscle spasms [Not Recovered/Not Resolved]
  - Haemorrhage [Recovered/Resolved]
  - Nausea [Not Recovered/Not Resolved]
  - Retching [Not Recovered/Not Resolved]
  - Diarrhoea [Recovered/Resolved]
  - Vomiting [Recovered/Resolved]
  - Constipation [Not Recovered/Not Resolved]
  - Infusion related reaction [Not Recovered/Not Resolved]
